FAERS Safety Report 5304521-9 (Version None)
Quarter: 2007Q2

REPORT INFORMATION
  Report Type: 
  Country: None (occurrence: None)
  Receive Date: 20070423
  Receipt Date: 20070416
  Transmission Date: 20071010
  Serious: Yes (Hospitalization, Disabling)
  Sender: FDA-Public Use
  Company Number: US-JNJFOC-20060701854

PATIENT
  Sex: Female
  Weight: 48.17 kg

DRUGS (1)
  1. ORTHO EVRA [Suspect]
     Indication: DRUG USE FOR UNKNOWN INDICATION
     Route: 062

REACTIONS (4)
  - CEREBELLAR HAEMANGIOMA [None]
  - DEEP VEIN THROMBOSIS [None]
  - HAEMATOMA [None]
  - PANCREATITIS [None]
